FAERS Safety Report 8410826-5 (Version None)
Quarter: 2012Q2

REPORT INFORMATION
  Report Type: 
  Country: None (occurrence: None)
  Receive Date: 20120605
  Receipt Date: 20120601
  Transmission Date: 20120825
  Serious: Yes (Other)
  Sender: FDA-Public Use
  Company Number: US-PFIZER INC-2012133491

PATIENT
  Sex: Male

DRUGS (3)
  1. CORDARONE [Suspect]
     Dosage: UNK
  2. VIAGRA [Suspect]
     Dosage: UNK
  3. SPIRIVA [Suspect]
     Dosage: UNK

REACTIONS (2)
  - CHRONIC OBSTRUCTIVE PULMONARY DISEASE [None]
  - DYSPNOEA [None]
